FAERS Safety Report 15829170 (Version 1)
Quarter: 2019Q1

REPORT INFORMATION
  Report Type: Spontaneous
  Country: US (occurrence: US)
  Receive Date: 20190115
  Receipt Date: 20190115
  Transmission Date: 20190417
  Serious: No
  Sender: FDA-Public Use
  Company Number: US-ALLERGAN-1854255US

PATIENT
  Sex: Male
  Weight: 81.63 kg

DRUGS (2)
  1. REFRESH [Concomitant]
     Active Substance: UNSPECIFIED INGREDIENT
     Indication: DRY EYE
     Dosage: PRN
     Route: 047
  2. RESTASIS [Suspect]
     Active Substance: CYCLOSPORINE
     Indication: DRY EYE
     Dosage: 2 GTT, BID
     Route: 047
     Dates: start: 201811

REACTIONS (4)
  - Accidental exposure to product [Unknown]
  - Product container issue [Unknown]
  - Drug ineffective [Unknown]
  - Incorrect dose administered [Unknown]
